FAERS Safety Report 8063708 (Version 3)
Quarter: 2012Q4

REPORT INFORMATION
  Report Type: 
  Country: IT (occurrence: IT)
  Receive Date: 20110801
  Receipt Date: 20121029
  Transmission Date: 20130627
  Serious: Yes (Hospitalization)
  Sender: FDA-Public Use
  Company Number: PHHY2011IT64480

PATIENT
  Age: 68 Year
  Sex: Female

DRUGS (1)
  1. TASIGNA [Suspect]
     Indication: CHRONIC MYELOID LEUKAEMIA
     Dosage: 600 mg, daily
     Route: 048
     Dates: start: 20100908, end: 20101101

REACTIONS (1)
  - Myocardial infarction [Recovering/Resolving]
